FAERS Safety Report 24050581 (Version 4)
Quarter: 2024Q3

REPORT INFORMATION
  Report Type: Report from Study
  Country: CA (occurrence: CA)
  Receive Date: 20240704
  Receipt Date: 20240912
  Transmission Date: 20241017
  Serious: Yes (Other)
  Sender: NOVARTIS
  Company Number: CA-002147023-NVSC2023CA206314

PATIENT
  Age: 31 Year
  Sex: Female

DRUGS (1)
  1. KESIMPTA [Suspect]
     Active Substance: OFATUMUMAB
     Indication: Relapsing-remitting multiple sclerosis
     Dosage: 20 MG, QMO
     Route: 058
     Dates: start: 20230920

REACTIONS (5)
  - Expanded disability status scale score increased [Unknown]
  - Irritability [Unknown]
  - Pain [Unknown]
  - Feeling cold [Unknown]
  - Headache [Unknown]

NARRATIVE: CASE EVENT DATE: 20230920
